FAERS Safety Report 24860562 (Version 2)
Quarter: 2025Q1

REPORT INFORMATION
  Report Type: Report from Study
  Country: IN (occurrence: IN)
  Receive Date: 20250120
  Receipt Date: 20250212
  Transmission Date: 20250408
  Serious: Yes (Other)
  Sender: ROCHE
  Company Number: IN-ROCHE-10000177408

PATIENT
  Age: 63 Year
  Sex: Female

DRUGS (2)
  1. PHESGO [Suspect]
     Active Substance: HYALURONIDASE-ZZXF\PERTUZUMAB\TRASTUZUMAB
     Indication: Breast cancer
     Route: 058
  2. PHESGO [Suspect]
     Active Substance: HYALURONIDASE-ZZXF\PERTUZUMAB\TRASTUZUMAB
     Route: 058
     Dates: start: 20240603

REACTIONS (7)
  - Nasopharyngitis [Unknown]
  - Pyrexia [Unknown]
  - Mastectomy [Unknown]
  - Lymphadenopathy [Unknown]
  - Breast neoplasm [Unknown]
  - Biopsy lymph gland [Unknown]
  - Calcinosis [Unknown]

NARRATIVE: CASE EVENT DATE: 20240606
